FAERS Safety Report 9717151 (Version 2)
Quarter: 2014Q1

REPORT INFORMATION
  Report Type: Spontaneous
  Country: US (occurrence: US)
  Receive Date: 20131127
  Receipt Date: 20140129
  Transmission Date: 20141002
  Serious: Yes (Hospitalization, Other)
  Sender: FDA-Public Use
  Company Number: US-009507513-1311USA008999

PATIENT
  Age: 47 Year
  Sex: Male

DRUGS (3)
  1. TICE BCG LIVE [Suspect]
     Indication: BLADDER CANCER
     Dosage: 1 VIAL
     Route: 043
     Dates: start: 20131112, end: 20131114
  2. HYDROCHLOROTHIAZIDE [Concomitant]
  3. TRAMADOL HYDROCHLORIDE [Concomitant]

REACTIONS (1)
  - Sepsis [Recovered/Resolved]
